FAERS Safety Report 5274121-8 (Version None)
Quarter: 2007Q1

REPORT INFORMATION
  Report Type: 
  Country: None (occurrence: None)
  Receive Date: 20070323
  Receipt Date: 20070314
  Transmission Date: 20070707
  Serious: Yes (Hospitalization, Other)
  Sender: FDA-Public Use
  Company Number: US-PURDUE-USA_2007_0026773

PATIENT
  Age: 53 Year
  Sex: Male

DRUGS (7)
  1. OXYCODONE HCL [Suspect]
     Indication: PAIN
     Dosage: UNK, UNK
     Route: 065
  2. HYDROMORPHONE HCL [Suspect]
     Indication: PAIN
     Dosage: UNK, UNK
     Route: 065
  3. DULOXETINE [Suspect]
     Indication: DEPRESSION
     Dosage: 60 MG, DAILY
     Route: 065
  4. PREGABALIN [Concomitant]
     Indication: PAIN
     Dosage: 75 MG, BID
  5. BUPROPION HCL [Suspect]
     Indication: DEPRESSION
     Dosage: 300 MG, DAILY
     Route: 065
  6. VANCOMYCIN [Concomitant]
     Indication: INFECTION
  7. CYCLOBENZAPRINE HCL [Suspect]
     Indication: DRUG USE FOR UNKNOWN INDICATION
     Dosage: 10 MG, TID
     Route: 065

REACTIONS (1)
  - SEROTONIN SYNDROME [None]
